FAERS Safety Report 13824814 (Version 5)
Quarter: 2018Q2

REPORT INFORMATION
  Report Type: Spontaneous
  Country: JP (occurrence: JP)
  Receive Date: 20170802
  Receipt Date: 20180518
  Transmission Date: 20180711
  Serious: Yes (Hospitalization)
  Sender: FDA-Public Use
  Company Number: JP-ASTELLAS-2017JP013006AA

PATIENT
  Age: 88 Year
  Sex: Male

DRUGS (18)
  1. XTANDI [Suspect]
     Active Substance: ENZALUTAMIDE
     Dosage: 80 MG, ONCE DAILY, AFTER THE BREAKFAST
     Route: 048
     Dates: start: 20150416, end: 20150819
  2. BETANIS [Suspect]
     Active Substance: MIRABEGRON
     Indication: HYPERTONIC BLADDER
     Route: 048
     Dates: start: 20151029, end: 20160106
  3. VESICARE [Suspect]
     Active Substance: SOLIFENACIN SUCCINATE
     Indication: HYPERTONIC BLADDER
     Route: 048
     Dates: start: 20160107, end: 20161227
  4. OMEPRAZOLE. [Concomitant]
     Active Substance: OMEPRAZOLE
     Indication: GASTRIC ULCER
     Route: 048
  5. EDARAVONE [Concomitant]
     Active Substance: EDARAVONE
     Indication: CEREBRAL INFARCTION
     Dosage: UNK UNK, UNKNOWN FREQ.
     Route: 065
     Dates: start: 20160104, end: 20160106
  6. ASPIRIN. [Concomitant]
     Active Substance: ASPIRIN
     Indication: PRODUCT USED FOR UNKNOWN INDICATION
     Dosage: UNK UNK, UNKNOWN FREQ.
     Route: 048
  7. XTANDI [Suspect]
     Active Substance: ENZALUTAMIDE
     Dosage: 80 MG, ONCE DAILY, AFTER THE DINNER
     Route: 048
     Dates: start: 20160303
  8. FLIVAS [Concomitant]
     Active Substance: NAFTOPIDIL
     Indication: PRODUCT USED FOR UNKNOWN INDICATION
     Route: 048
     Dates: start: 20160107
  9. LEUPLIN [Concomitant]
     Active Substance: LEUPROLIDE ACETATE
     Indication: PROSTATE CANCER
     Dosage: 11.25 MG, 12 WEEKS
     Route: 058
     Dates: start: 20040825
  10. BAYASPIRIN [Concomitant]
     Active Substance: ASPIRIN
     Indication: CEREBRAL INFARCTION
     Route: 048
     Dates: start: 2005
  11. CEREKINON [Concomitant]
     Active Substance: TRIMEBUTINE
     Indication: CHRONIC GASTRITIS
     Route: 048
  12. XTANDI [Suspect]
     Active Substance: ENZALUTAMIDE
     Dosage: 120 MG, ONCE DAILY, AFTER THE DINNER
     Route: 048
     Dates: start: 20150820, end: 20160106
  13. PLETAAL [Concomitant]
     Active Substance: CILOSTAZOL
     Indication: CEREBRAL INFARCTION
     Route: 048
     Dates: start: 2005
  14. XTANDI [Suspect]
     Active Substance: ENZALUTAMIDE
     Indication: PROSTATE CANCER
     Dosage: 160 MG, ONCE DAILY, AFTER THE BREAKFAST
     Route: 048
     Dates: start: 20150122, end: 20150304
  15. GOSHAJINKIGAN [Concomitant]
     Active Substance: HERBALS
     Indication: PROSTATE CANCER
     Route: 048
     Dates: start: 20150205, end: 20160204
  16. CILOSTAZOL. [Concomitant]
     Active Substance: CILOSTAZOL
     Indication: PRODUCT USED FOR UNKNOWN INDICATION
     Dosage: UNK UNK, UNKNOWN FREQ.
     Route: 048
  17. URSO [Concomitant]
     Active Substance: URSODIOL
     Indication: DYSPEPSIA
     Route: 048
  18. XTANDI [Suspect]
     Active Substance: ENZALUTAMIDE
     Dosage: 120 MG, ONCE DAILY, AFTER THE BREAKFAST
     Route: 048
     Dates: start: 20150305, end: 20150415

REACTIONS (5)
  - Malaise [Recovered/Resolved]
  - Pollakiuria [Unknown]
  - Cerebral infarction [Recovered/Resolved]
  - Feeling abnormal [Unknown]
  - Constipation [Unknown]

NARRATIVE: CASE EVENT DATE: 20150205
